FAERS Safety Report 4487977-3 (Version None)
Quarter: 2004Q4

REPORT INFORMATION
  Report Type: 
  Country: None (occurrence: None)
  Receive Date: 20041026
  Receipt Date: 20041008
  Transmission Date: 20050328
  Serious: Yes (Other)
  Sender: FDA-Public Use
  Company Number: USA041080565

PATIENT
  Age: 66 Year
  Sex: Female
  Weight: 91 kg

DRUGS (9)
  1. EVISTA [Suspect]
     Indication: OSTEOPOROSIS
     Dosage: 60 MG/1 DAY
     Dates: end: 20040501
  2. FORTEO [Suspect]
     Indication: OSTEOPOROSIS
     Dosage: 20 UG/1 DAY
     Dates: start: 20031101
  3. FOSAMAX [Concomitant]
  4. PROTONIX [Concomitant]
  5. PRILOSEC (OMEPRAZOLE RATIOPHARM) [Concomitant]
  6. LASIX [Concomitant]
  7. ALBUTEROL [Concomitant]
  8. COMBIVENT [Concomitant]
  9. WELLBUTRIN [Concomitant]

REACTIONS (13)
  - COMPRESSION FRACTURE [None]
  - COUGH [None]
  - DYSPNOEA [None]
  - FOOT FRACTURE [None]
  - INJECTION SITE DISCOLOURATION [None]
  - INJECTION SITE HAEMORRHAGE [None]
  - LIMB INJURY [None]
  - MEDICATION ERROR [None]
  - PAIN [None]
  - PHARMACEUTICAL PRODUCT COMPLAINT [None]
  - PNEUMONIA [None]
  - RIB FRACTURE [None]
  - TRAUMATIC HAEMORRHAGE [None]
